FAERS Safety Report 25519925 (Version 1)
Quarter: 2025Q3

REPORT INFORMATION
  Report Type: Spontaneous
  Country: US (occurrence: US)
  Receive Date: 20250704
  Receipt Date: 20250704
  Transmission Date: 20251020
  Serious: No
  Sender: SANOFI AVENTIS
  Company Number: US-SA-2025SA187646

PATIENT
  Age: 76 Year
  Sex: Male

DRUGS (17)
  1. DUPIXENT [Suspect]
     Active Substance: DUPILUMAB
     Indication: Asthma
     Dosage: 300 MG, QOW
     Route: 058
  2. MUCINEX [Concomitant]
     Active Substance: GUAIFENESIN
  3. ALBUTEROL SULFATE [Concomitant]
     Active Substance: ALBUTEROL SULFATE
  4. ELIQUIS [Concomitant]
     Active Substance: APIXABAN
  5. MULTAQ [Concomitant]
     Active Substance: DRONEDARONE
  6. NASONEX [Concomitant]
     Active Substance: MOMETASONE FUROATE
  7. TRELEGY ELLIPTA [Concomitant]
     Active Substance: FLUTICASONE FUROATE\UMECLIDINIUM BROMIDE\VILANTEROL TRIFENATATE
  8. VITAMIN B12 [Concomitant]
     Active Substance: CYANOCOBALAMIN
  9. IPRATROPIUM [Concomitant]
     Active Substance: IPRATROPIUM
  10. TAMSULOSIN [Concomitant]
     Active Substance: TAMSULOSIN
  11. ROSUVASTATIN [Concomitant]
     Active Substance: ROSUVASTATIN
  12. NITROGLYCERIN [Concomitant]
     Active Substance: NITROGLYCERIN
  13. NASONEX [Concomitant]
     Active Substance: MOMETASONE FUROATE
  14. IRBESARTAN [Concomitant]
     Active Substance: IRBESARTAN
  15. ESOMEPRAZOLE [Concomitant]
     Active Substance: ESOMEPRAZOLE
  16. DILTIAZEM [Concomitant]
     Active Substance: DILTIAZEM
  17. IRON [Concomitant]
     Active Substance: IRON

REACTIONS (2)
  - Anaemia [Not Recovered/Not Resolved]
  - Injection site pain [Not Recovered/Not Resolved]

NARRATIVE: CASE EVENT DATE: 20250601
